FAERS Safety Report 6453467-1 (Version None)
Quarter: 2009Q4

REPORT INFORMATION
  Report Type: 
  Country: None (occurrence: None)
  Receive Date: 20091117
  Receipt Date: 20091104
  Transmission Date: 20100525
  Serious: Yes (Other)
  Sender: FDA-Public Use
  Company Number: 2009AL007104

PATIENT
  Age: 61 Year
  Sex: Female

DRUGS (4)
  1. EPIRUBICIN HCL [Suspect]
     Indication: BREAST CANCER
     Dates: start: 20050715, end: 20051015
  2. FLUOROURACIL [Concomitant]
  3. HERCEPTIN [Concomitant]
  4. TAXOTERE [Concomitant]

REACTIONS (1)
  - NEUTROPENIC SEPSIS [None]
